FAERS Safety Report 6086716-2 (Version None)
Quarter: 2009Q1

REPORT INFORMATION
  Report Type: 
  Country: None (occurrence: None)
  Receive Date: 20090223
  Receipt Date: 20090211
  Transmission Date: 20090719
  Serious: Yes (Other)
  Sender: FDA-Public Use
  Company Number: PHEH2009US01641

PATIENT
  Age: 79 Year
  Sex: Female

DRUGS (4)
  1. ZELNORM [Suspect]
     Dosage: UNK, UNK
     Dates: end: 20061122
  2. DOCUSATE SODIUM [Concomitant]
  3. ANTIHYPERTENSIVE DRUGS [Concomitant]
     Indication: HYPERTENSION
  4. THYROID HORMONES [Concomitant]

REACTIONS (2)
  - CARDIAC FAILURE [None]
  - DRUG INEFFECTIVE [None]
